FAERS Safety Report 9424667 (Version 3)
Quarter: 2015Q1

REPORT INFORMATION
  Report Type: Spontaneous
  Country: JP (occurrence: JP)
  Receive Date: 20130729
  Receipt Date: 20150122
  Transmission Date: 20150721
  Serious: Yes (Other)
  Sender: FDA-Public Use
  Company Number: JP-PFIZER INC-2013218303

PATIENT
  Age: 71 Year
  Sex: Male

DRUGS (4)
  1. ARGATROBAN. [Suspect]
     Active Substance: ARGATROBAN
     Indication: CEREBRAL INFARCTION
     Dosage: UNK
     Route: 040
  2. ARGATROBAN. [Suspect]
     Active Substance: ARGATROBAN
     Indication: ISCHAEMIC STROKE
  3. GRTPA [Suspect]
     Active Substance: ALTEPLASE
     Indication: ISCHAEMIC STROKE
  4. GRTPA [Suspect]
     Active Substance: ALTEPLASE
     Indication: CEREBRAL INFARCTION
     Dosage: 0.6 MG/KG, 1X/DAY
     Route: 042

REACTIONS (2)
  - Melaena [Unknown]
  - Anaemia [Unknown]
